FAERS Safety Report 7313297-5 (Version None)
Quarter: 2011Q1

REPORT INFORMATION
  Report Type: 
  Country: None (occurrence: None)
  Receive Date: 20110217
  Receipt Date: 20110217
  Transmission Date: 20110831
  Serious: Yes (Life-Threatening, Hospitalization)
  Sender: FDA-Public Use
  Company Number: None

PATIENT
  Sex: Female

DRUGS (9)
  1. FLONASE [Concomitant]
  2. ALBUTEROL INHALER [Concomitant]
  3. ASPIRIN [Concomitant]
  4. DABIGTRAN 150 MG [Suspect]
     Indication: ATRIAL FIBRILLATION
     Dosage: 150 MG BID PO
     Route: 048
  5. COMBIVENT [Concomitant]
  6. DIGOXIN [Concomitant]
  7. COLACE [Concomitant]
  8. CARDIZEM CD [Concomitant]
  9. DEMECLOCYCLINE HCL [Concomitant]

REACTIONS (5)
  - BRONCHIECTASIS [None]
  - HAEMOPTYSIS [None]
  - PULMONARY THROMBOSIS [None]
  - HYPOXIA [None]
  - TACHYCARDIA [None]
